FAERS Safety Report 9277106 (Version 1)
Quarter: 2013Q2

REPORT INFORMATION
  Report Type: Spontaneous
  Country: JP (occurrence: JP)
  Receive Date: 20130507
  Receipt Date: 20130507
  Transmission Date: 20140414
  Serious: Yes (Death)
  Sender: FDA-Public Use
  Company Number: JP-ELI_LILLY_AND_COMPANY-JP201202002792

PATIENT
  Age: 70 Year
  Sex: Female

DRUGS (3)
  1. FORTEO [Suspect]
     Dosage: UNK
     Route: 058
  2. FORTEO [Suspect]
     Route: 058
  3. FORTEO [Suspect]
     Route: 058

REACTIONS (4)
  - Death [Fatal]
  - Injection site bruising [Not Recovered/Not Resolved]
  - Purpura [Unknown]
  - Nausea [Unknown]
